FAERS Safety Report 23547374 (Version 1)
Quarter: 2024Q1

REPORT INFORMATION
  Report Type: Spontaneous
  Country: US (occurrence: US)
  Receive Date: 20240221
  Receipt Date: 20240221
  Transmission Date: 20240409
  Serious: No
  Sender: FDA-Public Use
  Company Number: US-BAUSCH-BL-2024-002445

PATIENT
  Age: 75 Year
  Sex: Female
  Weight: 49.94 kg

DRUGS (2)
  1. XIFAXAN [Suspect]
     Active Substance: RIFAXIMIN
     Indication: Gastrointestinal bacterial overgrowth
     Route: 048
     Dates: start: 20240213, end: 20240213
  2. XIFAXAN [Suspect]
     Active Substance: RIFAXIMIN
     Indication: Off label use

REACTIONS (4)
  - Diarrhoea [Unknown]
  - Drug hypersensitivity [Unknown]
  - Off label use [Unknown]
  - Therapy cessation [Unknown]

NARRATIVE: CASE EVENT DATE: 20240213
